FAERS Safety Report 12442028 (Version 1)
Quarter: 2016Q2

REPORT INFORMATION
  Report Type: Spontaneous
  Country: US (occurrence: US)
  Receive Date: 20160607
  Receipt Date: 20160607
  Transmission Date: 20160815
  Serious: No
  Sender: FDA-Public Use
  Company Number: US-BAYER-2016-105778

PATIENT
  Age: 56 Year
  Sex: Male

DRUGS (1)
  1. MIRALAX [Suspect]
     Active Substance: POLYETHYLENE GLYCOL 3350
     Indication: COLONOSCOPY
     Dosage: 4 DF, ONCE (1 DOSE DAY BEFORE SCHEDULED COLONOSCOPY)
     Route: 048
     Dates: start: 20160526, end: 20160526

REACTIONS (3)
  - Product use issue [None]
  - Abdominal pain [None]
  - Feeling abnormal [None]

NARRATIVE: CASE EVENT DATE: 20160526
